FAERS Safety Report 17863276 (Version 12)
Quarter: 2024Q3

REPORT INFORMATION
  Report Type: Report from Study
  Country: DE (occurrence: DE)
  Receive Date: 20200605
  Receipt Date: 20240807
  Transmission Date: 20241017
  Serious: Yes (Hospitalization, Other)
  Sender: ROCHE
  Company Number: DE-ROCHE-2610228

PATIENT
  Age: 67 Year
  Sex: Female
  Weight: 87.0 kg

DRUGS (24)
  1. TOCILIZUMAB [Suspect]
     Active Substance: TOCILIZUMAB
     Indication: Giant cell arteritis
     Dosage: START DATE 18-MAY-2020
     Route: 058
     Dates: end: 20200622
  2. TOCILIZUMAB [Suspect]
     Active Substance: TOCILIZUMAB
     Indication: Rheumatoid arthritis
     Route: 058
     Dates: start: 20200525, end: 20200629
  3. TOCILIZUMAB [Suspect]
     Active Substance: TOCILIZUMAB
     Route: 058
  4. TOCILIZUMAB [Suspect]
     Active Substance: TOCILIZUMAB
     Route: 058
     Dates: start: 20201014
  5. TOCILIZUMAB [Suspect]
     Active Substance: TOCILIZUMAB
     Route: 058
  6. TOCILIZUMAB [Suspect]
     Active Substance: TOCILIZUMAB
     Indication: Giant cell arteritis
     Dosage: START DATE 06-APR-2020
     Route: 042
     Dates: end: 20200504
  7. CORTISONE [Suspect]
     Active Substance: CORTISONE
     Indication: Giant cell arteritis
     Dosage: START DATE 06-APR-2020
     Route: 065
  8. CORTISONE [Suspect]
     Active Substance: CORTISONE
     Route: 065
     Dates: start: 2020
  9. JARDIANCE [Suspect]
     Active Substance: EMPAGLIFLOZIN
     Indication: Product used for unknown indication
     Route: 065
  10. METFORMIN [Concomitant]
     Active Substance: METFORMIN HYDROCHLORIDE
     Dosage: (0-1-0)
  11. METFORMIN [Concomitant]
     Active Substance: METFORMIN HYDROCHLORIDE
     Dosage: (1/2-0-1/2)
  12. TORSEMIDE [Concomitant]
     Active Substance: TORSEMIDE
     Dosage: 2-0-0
  13. TORSEMIDE [Concomitant]
     Active Substance: TORSEMIDE
     Dosage: 5 MG (0.5-0-0)
  14. EUTHYROX [Concomitant]
     Active Substance: LEVOTHYROXINE SODIUM
     Route: 065
  15. PREDNISOLONE [Concomitant]
     Active Substance: PREDNISOLONE
     Route: 065
  16. PREDNISOLONE [Concomitant]
     Active Substance: PREDNISOLONE
     Route: 065
  17. PREDNISOLONE [Concomitant]
     Active Substance: PREDNISOLONE
  18. PREDNISOLONE [Concomitant]
     Active Substance: PREDNISOLONE
  19. PREDNISOLONE [Concomitant]
     Active Substance: PREDNISOLONE
  20. PREDNISOLONE [Concomitant]
     Active Substance: PREDNISOLONE
  21. RAMIPRIL [Concomitant]
     Active Substance: RAMIPRIL
     Dosage: 1/2-0-0
  22. ALENDRONIC ACID [Concomitant]
     Active Substance: ALENDRONIC ACID
  23. PANTOPRAZOLE [Concomitant]
     Active Substance: PANTOPRAZOLE
  24. URSODIOL [Concomitant]
     Active Substance: URSODIOL

REACTIONS (47)
  - Injection site haemorrhage [Recovered/Resolved]
  - Intra-abdominal haematoma [Recovered/Resolved]
  - Headache [Not Recovered/Not Resolved]
  - Visual impairment [Not Recovered/Not Resolved]
  - C-reactive protein increased [Not Recovered/Not Resolved]
  - Aggression [Recovered/Resolved]
  - Dyspnoea [Recovering/Resolving]
  - Weight increased [Not Recovered/Not Resolved]
  - Violence-related symptom [Recovered/Resolved]
  - Pruritus [Recovered/Resolved]
  - Toothache [Recovered/Resolved]
  - Pain [Not Recovered/Not Resolved]
  - Injection site pain [Not Recovered/Not Resolved]
  - Injection site pruritus [Recovered/Resolved]
  - Injection site erythema [Recovered/Resolved]
  - Sensitive skin [Unknown]
  - Dizziness [Unknown]
  - Hyperhidrosis [Not Recovered/Not Resolved]
  - Gait disturbance [Recovered/Resolved]
  - Pneumonitis [Not Recovered/Not Resolved]
  - Gamma-glutamyltransferase increased [Recovering/Resolving]
  - Full blood count decreased [Not Recovered/Not Resolved]
  - Lung disorder [Recovered/Resolved]
  - Computerised tomogram liver abnormal [Not Recovered/Not Resolved]
  - Hypertension [Recovered/Resolved]
  - Infection [Unknown]
  - Biliary dilatation [Unknown]
  - Abnormal sensation in eye [Recovering/Resolving]
  - General physical health deterioration [Unknown]
  - Aspartate aminotransferase increased [Recovering/Resolving]
  - Alanine aminotransferase increased [Recovering/Resolving]
  - Tumour marker increased [Not Recovered/Not Resolved]
  - Hepatotoxicity [Not Recovered/Not Resolved]
  - Vasoconstriction [Not Recovered/Not Resolved]
  - Blood glucose increased [Not Recovered/Not Resolved]
  - Nasopharyngitis [Not Recovered/Not Resolved]
  - Intracranial aneurysm [Not Recovered/Not Resolved]
  - Fluid retention [Not Recovered/Not Resolved]
  - Hypotension [Recovered/Resolved]
  - Dizziness [Recovered/Resolved]
  - Blood creatinine decreased [Not Recovered/Not Resolved]
  - Diarrhoea [Not Recovered/Not Resolved]
  - Abdominal pain lower [Not Recovered/Not Resolved]
  - Diverticulitis [Unknown]
  - Vulvovaginal inflammation [Recovered/Resolved]
  - Pruritus [Not Recovered/Not Resolved]
  - Dyspepsia [Unknown]

NARRATIVE: CASE EVENT DATE: 20200101
